FAERS Safety Report 5246948-X (Version None)
Quarter: 2007Q1

REPORT INFORMATION
  Report Type: 
  Country: None (occurrence: None)
  Receive Date: 20070226
  Receipt Date: 20070219
  Transmission Date: 20070707
  Serious: Yes (Hospitalization, Other)
  Sender: FDA-Public Use
  Company Number: JP-PFIZER INC-2006125042

PATIENT
  Sex: Male
  Weight: 39 kg

DRUGS (3)
  1. GENOTROPIN [Suspect]
     Indication: GROWTH HORMONE DEFICIENCY
     Route: 058
     Dates: start: 20060614, end: 20061018
  2. GENOTROPIN [Suspect]
     Route: 058
  3. THYRADIN S [Suspect]
     Indication: HYPOTHYROIDISM
     Route: 048

REACTIONS (1)
  - SALIVARY GLAND ADENOMA [None]
